FAERS Safety Report 23844583 (Version 1)
Quarter: 2024Q2

REPORT INFORMATION
  Report Type: Spontaneous
  Country: FR (occurrence: FR)
  Receive Date: 20240511
  Receipt Date: 20240511
  Transmission Date: 20240715
  Serious: Yes (Congenital Anomaly, Other)
  Sender: FDA-Public Use
  Company Number: FR-CELLTRION INC.-2024FR010460

PATIENT

DRUGS (1)
  1. ADALIMUMAB [Suspect]
     Active Substance: ADALIMUMAB\ISOPROPYL ALCOHOL
     Indication: Ankylosing spondylitis
     Dosage: 1 DF, Q2WEEKS
     Route: 064

REACTIONS (3)
  - Renal hypoplasia [Unknown]
  - Pelvic kidney [Unknown]
  - Paternal exposure before pregnancy [Unknown]

NARRATIVE: CASE EVENT DATE: 20201030
